FAERS Safety Report 8033729-7 (Version None)
Quarter: 2012Q1

REPORT INFORMATION
  Report Type: 
  Country: None (occurrence: None)
  Receive Date: 20120110
  Receipt Date: 20120104
  Transmission Date: 20120608
  Serious: Yes (Congenital Anomaly)
  Sender: FDA-Public Use
  Company Number: US-GLAXOSMITHKLINE-A0960614A

PATIENT
  Sex: Female

DRUGS (1)
  1. PAXIL [Suspect]
     Indication: PRODUCT USED FOR UNKNOWN INDICATION
     Route: 064

REACTIONS (10)
  - PATENT DUCTUS ARTERIOSUS [None]
  - DEVELOPMENTAL DELAY [None]
  - CRANIOSYNOSTOSIS [None]
  - ARTERIAL STENOSIS [None]
  - RETINOPATHY OF PREMATURITY [None]
  - PULMONARY ARTERY STENOSIS [None]
  - HEART DISEASE CONGENITAL [None]
  - GASTROOESOPHAGEAL REFLUX DISEASE [None]
  - HEAD DEFORMITY [None]
  - FOETAL EXPOSURE DURING PREGNANCY [None]
